FAERS Safety Report 8543998-2 (Version None)
Quarter: 2012Q3

REPORT INFORMATION
  Report Type: 
  Country: None (occurrence: None)
  Receive Date: 20120727
  Receipt Date: 20120720
  Transmission Date: 20120928
  Serious: Yes (Other)
  Sender: FDA-Public Use
  Company Number: US-PURDUE-USA-2012-0088399

PATIENT
  Age: 57 Year
  Sex: Male
  Weight: 106.58 kg

DRUGS (5)
  1. OXYCONTIN [Suspect]
     Dosage: 40 MG, UNK
  2. OXYCONTIN [Suspect]
     Dosage: 160 MG, BID
     Dates: end: 20120401
  3. OXYCONTIN [Suspect]
     Dosage: 20 MG, UNK
  4. INTERFERON                         /05982601/ [Concomitant]
     Indication: HEPATITIS C
  5. OXYCONTIN [Suspect]
     Indication: PAIN IN EXTREMITY
     Dosage: 10 MG, UNK
     Dates: start: 20020101

REACTIONS (33)
  - PAIN IN EXTREMITY [None]
  - PAIN [None]
  - COSTOCHONDRITIS [None]
  - DRUG DEPENDENCE [None]
  - DRUG WITHDRAWAL SYNDROME [None]
  - INJURY [None]
  - LOSS OF EMPLOYMENT [None]
  - ARTHRALGIA [None]
  - BACK PAIN [None]
  - BRAIN INJURY [None]
  - AFFECTIVE DISORDER [None]
  - NERVOUS SYSTEM DISORDER [None]
  - LOGORRHOEA [None]
  - INADEQUATE ANALGESIA [None]
  - NEUROPATHY PERIPHERAL [None]
  - DECREASED INTEREST [None]
  - ERYTHEMA [None]
  - EUPHORIC MOOD [None]
  - NECK PAIN [None]
  - ANXIETY [None]
  - DEAFNESS [None]
  - NEUROTOXICITY [None]
  - MAJOR DEPRESSION [None]
  - BRADYPHRENIA [None]
  - UNEVALUABLE EVENT [None]
  - DYSARTHRIA [None]
  - ALLODYNIA [None]
  - MUSCULOSKELETAL PAIN [None]
  - OEDEMA PERIPHERAL [None]
  - CHILLS [None]
  - HYPERAESTHESIA [None]
  - JUDGEMENT IMPAIRED [None]
  - DRUG INEFFECTIVE [None]
